FAERS Safety Report 20755034 (Version 1)
Quarter: 2022Q2

REPORT INFORMATION
  Report Type: Spontaneous
  Country: US (occurrence: US)
  Receive Date: 20220427
  Receipt Date: 20220427
  Transmission Date: 20220720
  Serious: Yes (Other)
  Sender: FDA-Public Use
  Company Number: US-BRISTOL-MYERS SQUIBB COMPANY-2022-022638

PATIENT
  Sex: Female

DRUGS (7)
  1. REVLIMID [Suspect]
     Active Substance: LENALIDOMIDE
     Indication: Plasma cell myeloma
     Dosage: TAKE 1 CAPSULE BY MOUTH DAILY ON DAYS 1 TO 14 ON, FOLLOWED BY 7 DAYS OFF EACH 21 DAYCHEMOTHERAPY CYC
     Route: 048
     Dates: start: 20210521
  2. ASPIRIN CHW 81MG [Concomitant]
     Indication: Product used for unknown indication
  3. MULTIVITAMIN TAB [Concomitant]
     Indication: Product used for unknown indication
  4. PRILOSEC OTC TAB 20MG [Concomitant]
     Indication: Product used for unknown indication
  5. PROCHLORPER TAB 5MG [Concomitant]
  6. VITAMIN C CHW500MG [Concomitant]
     Indication: Product used for unknown indication
  7. VITAMIN D3 TAB 25MCG [Concomitant]
     Indication: Product used for unknown indication

REACTIONS (1)
  - Neuropathy peripheral [Unknown]
